FAERS Safety Report 8458110-8 (Version None)
Quarter: 2012Q2

REPORT INFORMATION
  Report Type: 
  Country: None (occurrence: None)
  Receive Date: 20120622
  Receipt Date: 20120612
  Transmission Date: 20120825
  Serious: Yes (Other)
  Sender: FDA-Public Use
  Company Number: CA-JNJFOC-20120606619

PATIENT
  Sex: Male
  Weight: 84.5 kg

DRUGS (3)
  1. IMURAN [Concomitant]
     Route: 065
  2. REMICADE [Suspect]
     Indication: CROHN'S DISEASE
     Dosage: TOTAL OF 75 INFUSIONS AND DOSE (10 MG/KG)
     Route: 042
     Dates: start: 20120101
  3. REMICADE [Suspect]
     Route: 042
     Dates: start: 20040101

REACTIONS (4)
  - INTESTINAL OBSTRUCTION [None]
  - CROHN'S DISEASE [None]
  - ILEAL ULCER [None]
  - GASTROINTESTINAL OEDEMA [None]
